FAERS Safety Report 24185760 (Version 1)
Quarter: 2024Q3

REPORT INFORMATION
  Report Type: Spontaneous
  Country: US (occurrence: US)
  Receive Date: 20240807
  Receipt Date: 20240807
  Transmission Date: 20241016
  Serious: No
  Sender: MERCK
  Company Number: US-009507513-2407USA005087

PATIENT
  Age: 71 Year
  Sex: Male

DRUGS (4)
  1. KEYTRUDA [Suspect]
     Active Substance: PEMBROLIZUMAB
     Indication: Metastases to meninges
     Dosage: 200 MILLIGRAM, EVERY 3 WEEKS
     Route: 042
  2. TOPOTECAN [Suspect]
     Active Substance: TOPOTECAN HYDROCHLORIDE
     Indication: Metastases to meninges
     Dosage: 0.4 MILLIGRAM, TWICE WEEKLY (CYCLES 1 AND 2)
     Route: 037
  3. TOPOTECAN [Suspect]
     Active Substance: TOPOTECAN HYDROCHLORIDE
     Dosage: 0.4 MILLIGRAM, WEEKLY (CYCLES 3 AND 4)
     Route: 037
  4. TOPOTECAN [Suspect]
     Active Substance: TOPOTECAN HYDROCHLORIDE
     Dosage: 0.4 MILLIGRAM, EVERY 2 WEEKS (CYCLES 5 AND ONWARD)
     Route: 037

REACTIONS (1)
  - Off label use [Unknown]
